FAERS Safety Report 9924354 (Version 1)
Quarter: 2014Q1

REPORT INFORMATION
  Report Type: Spontaneous
  Country: DE (occurrence: DE)
  Receive Date: 20140226
  Receipt Date: 20140226
  Transmission Date: 20141002
  Serious: Yes (Other)
  Sender: FDA-Public Use
  Company Number: DE-ASTRAZENECA-2014SE11758

PATIENT
  Age: 1 Day
  Sex: Male
  Weight: 6 kg

DRUGS (5)
  1. SEROQUEL [Suspect]
     Indication: DEPRESSION
     Route: 064
     Dates: start: 20120422
  2. SEROQUEL [Suspect]
     Indication: DEPRESSION
     Route: 064
     Dates: end: 20130211
  3. CYMBALTA [Concomitant]
     Indication: DEPRESSION
     Route: 064
     Dates: start: 20120422, end: 20120605
  4. CITALOPRAM [Concomitant]
     Indication: DEPRESSION
     Route: 064
     Dates: start: 20120606, end: 20130111
  5. FOLIC ACID [Concomitant]
     Indication: PROPHYLAXIS OF NEURAL TUBE DEFECT
     Route: 064
     Dates: start: 20120618, end: 20130111

REACTIONS (1)
  - Large for dates baby [Recovered/Resolved]
